FAERS Safety Report 9734609 (Version 3)
Quarter: 2016Q3

REPORT INFORMATION
  Report Type: Report from Study
  Country: US (occurrence: US)
  Receive Date: 20131206
  Receipt Date: 20160815
  Transmission Date: 20161109
  Serious: Yes (Hospitalization)
  Sender: FDA-Public Use
  Company Number: US-ROCHE-1309747

PATIENT
  Age: 37 Year
  Sex: Female
  Weight: 76.91 kg

DRUGS (28)
  1. ALLEGRA [Concomitant]
     Active Substance: FEXOFENADINE HYDROCHLORIDE
     Indication: PRURITUS
     Dosage: PRN
     Route: 048
  2. ZANTAC [Concomitant]
     Active Substance: RANITIDINE HYDROCHLORIDE
     Dosage: 150 MG PO TABLET 2 TIMES DAILY
     Route: 048
  3. NUTROPIN AQ [Suspect]
     Active Substance: SOMATROPIN
     Indication: BODY HEIGHT BELOW NORMAL
     Route: 058
  4. KLONOPIN [Concomitant]
     Active Substance: CLONAZEPAM
     Dosage: 0.5 MG PO TABLET 0.25 MG PO 2 TIMES DAILY AS NEEDED
     Route: 048
  5. FERROUS SULFATE. [Concomitant]
     Active Substance: FERROUS SULFATE
     Route: 065
  6. CLONAZEPAM. [Concomitant]
     Active Substance: CLONAZEPAM
  7. FENTANYL. [Concomitant]
     Active Substance: FENTANYL
  8. HYDROCODONE BITARTRATE/ACETAMINOPHEN [Concomitant]
     Active Substance: ACETAMINOPHEN\HYDROCODONE BITARTRATE
  9. NUTROPIN AQ [Suspect]
     Active Substance: SOMATROPIN
     Indication: GROWTH HORMONE DEFICIENCY
     Route: 058
  10. DESOWEN [Concomitant]
     Active Substance: DESONIDE
     Dosage: 0.05% TOPICAL OINTMENT APPLY TOPICALLY 2 TIMES DAI
     Route: 065
  11. PERCOGESIC ORIGINAL STRENGTH [Concomitant]
     Active Substance: ACETAMINOPHEN\DIPHENHYDRAMINE
     Dosage: PO 30-325 MG
     Route: 048
  12. VITAMIN B12 [Concomitant]
     Active Substance: CYANOCOBALAMIN
     Route: 065
  13. FLOMAX [Concomitant]
     Active Substance: TAMSULOSIN HYDROCHLORIDE
     Route: 048
  14. TEMOVATE [Concomitant]
     Active Substance: CLOBETASOL PROPIONATE
     Dosage: 0.05% TOPICAL CREAMAPPLY TOPICALLY 2 TIMES DAILY
     Route: 065
  15. DOXYCYCLIN [Concomitant]
     Active Substance: DOXYCYCLINE
  16. VALIUM [Concomitant]
     Active Substance: DIAZEPAM
     Route: 048
  17. ZOLPIDEM [Concomitant]
     Active Substance: ZOLPIDEM\ZOLPIDEM TARTRATE
     Route: 048
  18. TORADOL [Concomitant]
     Active Substance: KETOROLAC TROMETHAMINE
  19. NUTROPIN AQ [Suspect]
     Active Substance: SOMATROPIN
     Route: 058
  20. PREVACID [Concomitant]
     Active Substance: LANSOPRAZOLE
  21. SYNALAR [Concomitant]
     Active Substance: FLUOCINOLONE ACETONIDE
     Dosage: 0.025% TOPICALLY USE DIRECTED
     Route: 065
  22. ZOFRAN [Concomitant]
     Active Substance: ONDANSETRON HYDROCHLORIDE
  23. BUSPIRONE [Concomitant]
     Active Substance: BUSPIRONE HYDROCHLORIDE
     Route: 065
  24. VITAMIN B12 [Concomitant]
     Active Substance: CYANOCOBALAMIN
     Route: 065
  25. DEHYDROEPIANDROSTERONE [Concomitant]
     Active Substance: PRASTERONE
     Route: 065
  26. VITAMIN B1 [Concomitant]
     Active Substance: THIAMINE HYDROCHLORIDE
  27. IBUPROFEN. [Concomitant]
     Active Substance: IBUPROFEN
     Indication: PAIN
     Route: 048
  28. COLACE [Concomitant]
     Active Substance: DOCUSATE SODIUM
     Route: 048

REACTIONS (16)
  - Weight increased [Unknown]
  - Pruritus [Unknown]
  - Fatigue [Unknown]
  - Abdominal pain [Recovered/Resolved]
  - Cough [Unknown]
  - Nasal discomfort [Unknown]
  - Renal stone removal [Recovered/Resolved]
  - Fatigue [Not Recovered/Not Resolved]
  - Injection site pain [Not Recovered/Not Resolved]
  - Vitamin B1 deficiency [Unknown]
  - Weight decreased [Unknown]
  - Insomnia [Not Recovered/Not Resolved]
  - Nausea [Recovered/Resolved]
  - Respiratory tract infection [Recovering/Resolving]
  - Insomnia [Unknown]
  - Acne [Unknown]

NARRATIVE: CASE EVENT DATE: 201206
